FAERS Safety Report 9004665 (Version 1)
Quarter: 2013Q1

REPORT INFORMATION
  Report Type: Spontaneous
  Country: US (occurrence: None)
  Receive Date: 20130102
  Receipt Date: 20130102
  Transmission Date: 20140127
  Serious: No
  Sender: FDA-Public Use
  Company Number: None

PATIENT
  Age: 33 Year
  Sex: Female
  Weight: 58.97 kg

DRUGS (1)
  1. MIRENA IUD [Suspect]
     Indication: CONTRACEPTION
     Dosage: REGULAR    INTRA-UTERINE
     Route: 015
     Dates: start: 20120322, end: 20121106

REACTIONS (15)
  - Depression [None]
  - Anxiety [None]
  - Nervousness [None]
  - Memory impairment [None]
  - Memory impairment [None]
  - Haemorrhage [None]
  - Headache [None]
  - Libido decreased [None]
  - Back pain [None]
  - Gastrointestinal motility disorder [None]
  - Feeling abnormal [None]
  - Device dislocation [None]
  - Uterine perforation [None]
  - Device dislocation [None]
  - Economic problem [None]
